FAERS Safety Report 18251138 (Version 1)
Quarter: 2020Q3

REPORT INFORMATION
  Report Type: Spontaneous
  Country: GB (occurrence: GB)
  Receive Date: 20200910
  Receipt Date: 20200910
  Transmission Date: 20201103
  Serious: Yes (Hospitalization)
  Sender: FDA-Public Use
  Company Number: GB-ACCORD-199885

PATIENT
  Age: 59 Year
  Sex: Female
  Weight: 88.9 kg

DRUGS (6)
  1. FUROSEMIDE. [Concomitant]
     Active Substance: FUROSEMIDE
  2. ARIPIPRAZOLE. [Suspect]
     Active Substance: ARIPIPRAZOLE
     Indication: BEREAVEMENT
     Route: 048
     Dates: start: 20160118
  3. MULTIVITAMIN [Concomitant]
     Active Substance: VITAMINS
  4. VERAPAMIL [Concomitant]
     Active Substance: VERAPAMIL HYDROCHLORIDE
  5. TRIHEXYPHENIDYL [Concomitant]
     Active Substance: TRIHEXYPHENIDYL
     Indication: PARKINSONISM
  6. COD?LIVER OIL [Concomitant]
     Active Substance: COD LIVER OIL

REACTIONS (2)
  - Skin infection [Not Recovered/Not Resolved]
  - Thermal burn [Not Recovered/Not Resolved]

NARRATIVE: CASE EVENT DATE: 20200118
